FAERS Safety Report 8534879-9 (Version None)
Quarter: 2012Q3

REPORT INFORMATION
  Report Type: 
  Country: None (occurrence: None)
  Receive Date: 20120724
  Receipt Date: 20120718
  Transmission Date: 20120928
  Serious: Yes (Death, Other)
  Sender: FDA-Public Use
  Company Number: GB-GENZYME-CLOF-1002213

PATIENT
  Sex: Male

DRUGS (1)
  1. CLOFARABINE [Suspect]
     Indication: LEUKAEMIA
     Dosage: UNK
     Route: 042
     Dates: start: 20120101, end: 20120101

REACTIONS (2)
  - PALMAR-PLANTAR ERYTHRODYSAESTHESIA SYNDROME [None]
  - DEATH [None]
